FAERS Safety Report 21927021 (Version 1)
Quarter: 2023Q1

REPORT INFORMATION
  Report Type: Spontaneous
  Country: US (occurrence: US)
  Receive Date: 20230130
  Receipt Date: 20230130
  Transmission Date: 20230417
  Serious: No
  Sender: FDA-Public Use
  Company Number: US-SAREPTA THERAPEUTICS INC.-SRP2022-002856

PATIENT
  Age: 18 Year
  Sex: Male
  Weight: 95.084 kg

DRUGS (10)
  1. AMONDYS 45 [Suspect]
     Active Substance: CASIMERSEN
     Indication: Duchenne muscular dystrophy
     Dosage: 2900 MILLIGRAM, WEEKLY
     Route: 042
     Dates: start: 20220929, end: 20221103
  2. AMONDYS 45 [Suspect]
     Active Substance: CASIMERSEN
     Dosage: 2900 MILLIGRAM WEEKLY
     Route: 042
     Dates: start: 20221207
  3. CARVEDILOL [Concomitant]
     Active Substance: CARVEDILOL
     Indication: Product used for unknown indication
     Dosage: 15.625 MILLIGRAM, BID
     Route: 048
     Dates: start: 20220207
  4. NAPROXEN [Concomitant]
     Active Substance: NAPROXEN
     Indication: Product used for unknown indication
     Dosage: 250 MILLIGRAM, UNK
     Route: 048
     Dates: start: 20220207
  5. LISINOPRIL [Concomitant]
     Active Substance: LISINOPRIL
     Indication: Product used for unknown indication
     Dosage: 10 MILLIGRAM, QD
     Route: 048
     Dates: start: 20220207
  6. ZOMETA [Concomitant]
     Active Substance: ZOLEDRONIC ACID
     Indication: Mineral supplementation
     Dosage: 4 MILLIGRAM, EVERY 6 MONTHS
     Route: 042
     Dates: start: 20220207
  7. OMEPRAZOLE [Concomitant]
     Active Substance: OMEPRAZOLE
     Indication: Gastrooesophageal reflux disease
     Dosage: 20 MILLIGRAM, QD
     Route: 048
     Dates: start: 20220207
  8. VITAMIN D NOS [Concomitant]
     Active Substance: VITAMIN D NOS
     Indication: Product used for unknown indication
     Dosage: UNK
     Route: 048
     Dates: start: 20220207
  9. EMFLAZA [Concomitant]
     Active Substance: DEFLAZACORT
     Indication: Product used for unknown indication
     Dosage: 12 MILLIGRAM, QD
     Route: 048
     Dates: start: 20220207
  10. IBUPROFEN [Concomitant]
     Active Substance: IBUPROFEN
     Indication: Product used for unknown indication
     Dosage: 400 MILLIGRAM, PRN
     Route: 048
     Dates: start: 20220207

REACTIONS (1)
  - Poor venous access [Unknown]

NARRATIVE: CASE EVENT DATE: 20221202
